FAERS Safety Report 4870669-6 (Version None)
Quarter: 2006Q1

REPORT INFORMATION
  Report Type: 
  Country: None (occurrence: None)
  Receive Date: 20060103
  Receipt Date: 20051220
  Transmission Date: 20060701
  Serious: No
  Sender: FDA-Public Use
  Company Number: BE-JNJFOC-20040604397

PATIENT
  Sex: Female
  Weight: 50 kg

DRUGS (6)
  1. BLINDED; GALANTAMINE [Suspect]
     Route: 048
     Dates: start: 20040519, end: 20040616
  2. PLACEBO [Suspect]
     Route: 048
     Dates: start: 20040519, end: 20040616
  3. RISPERIDONE [Suspect]
     Route: 048
  4. ASAFLOW [Concomitant]
     Route: 048
  5. GERATAM [Concomitant]
     Indication: MEMORY IMPAIRMENT
     Route: 048
  6. ACTONEL [Concomitant]
     Indication: OSTEOPOROSIS
     Route: 048

REACTIONS (1)
  - SHOULDER PAIN [None]
